FAERS Safety Report 8727631 (Version 3)
Quarter: 2012Q4

REPORT INFORMATION
  Report Type: 
  Country: DE (occurrence: DE)
  Receive Date: 20120816
  Receipt Date: 20121008
  Transmission Date: 20130627
  Serious: Yes (Hospitalization, Disabling)
  Sender: FDA-Public Use
  Company Number: DE-BRISTOL-MYERS SQUIBB COMPANY-16859704

PATIENT
  Age: 73 Year
  Sex: Male
  Weight: 91 kg

DRUGS (11)
  1. DEXAMETHASONE [Concomitant]
     Dosage: 4 mg 0-2mg untill 5Aug12, from 6Aug12 2mg-0-2mg
     Route: 048
  2. LYRICA [Concomitant]
     Route: 048
  3. LAXANS [Concomitant]
     Dosage: 1df= 10 gttae in evening
     Route: 048
  4. MORPHINE SULFATE [Concomitant]
     Route: 048
  5. ARCOXIA [Concomitant]
     Dosage: 1 df= 60 unit nos
     Dates: end: 20120811
  6. ERBITUX SOLN FOR INF [Suspect]
     Indication: COLON CANCER METASTATIC
     Dosage: once
     Route: 042
     Dates: start: 20120625, end: 20120625
  7. FOLINIC ACID [Concomitant]
     Indication: COLON CANCER METASTATIC
     Dosage: once
     Route: 042
     Dates: start: 20120625, end: 20120625
  8. FLUOROURACIL [Concomitant]
     Indication: COLON CANCER METASTATIC
     Dosage: once
25Jun-25Jun12-1150mg-once
     Route: 042
     Dates: start: 20120625, end: 20120625
  9. DOXYCYCLINE [Concomitant]
     Route: 048
  10. AMARYL [Concomitant]
     Route: 048
  11. KATADOLON [Concomitant]
     Dosage: katadolon S retard 400
     Route: 048

REACTIONS (7)
  - Amaurosis [Not Recovered/Not Resolved]
  - Iritis [Not Recovered/Not Resolved]
  - Cataract [Unknown]
  - Iridocyclitis [Recovering/Resolving]
  - Iris adhesions [Unknown]
  - Conjunctivitis [Unknown]
  - Keratitis [Unknown]
